FAERS Safety Report 10347349 (Version 4)
Quarter: 2014Q3

REPORT INFORMATION
  Report Type: Spontaneous
  Country: US (occurrence: US)
  Receive Date: 20140729
  Receipt Date: 20140808
  Transmission Date: 20150326
  Serious: No
  Sender: FDA-Public Use
  Company Number: US-PFIZER INC-2014207418

PATIENT
  Age: 47 Year
  Sex: Male
  Weight: 109 kg

DRUGS (3)
  1. NARDIL [Suspect]
     Active Substance: PHENELZINE SULFATE
     Indication: SOCIAL PHOBIA
     Dosage: 45 MG, 2X/DAY
     Route: 048
     Dates: start: 199303
  2. NARDIL [Suspect]
     Active Substance: PHENELZINE SULFATE
     Indication: STRESS
     Dosage: 45 MG, 2X/DAY
     Route: 048
     Dates: start: 199303
  3. NARDIL [Suspect]
     Active Substance: PHENELZINE SULFATE
     Indication: DEPRESSION

REACTIONS (4)
  - Fatigue [Unknown]
  - Drug ineffective [Unknown]
  - Headache [Unknown]
  - Pain [Unknown]

NARRATIVE: CASE EVENT DATE: 201405
